FAERS Safety Report 5664948-2 (Version None)
Quarter: 2008Q1

REPORT INFORMATION
  Report Type: 
  Country: None (occurrence: None)
  Receive Date: 20080314
  Receipt Date: 20080302
  Transmission Date: 20080703
  Serious: Yes (Other)
  Sender: FDA-Public Use
  Company Number: US-PFIZER INC-2008010827

PATIENT
  Sex: Male
  Weight: 115.2 kg

DRUGS (8)
  1. CHANTIX [Suspect]
     Indication: SMOKING CESSATION THERAPY
     Route: 048
  2. OMACOR [Concomitant]
     Route: 048
  3. LOVASTATIN [Concomitant]
  4. METFORMIN/PIOGLITAZONE [Concomitant]
  5. BENAZEPRIL HYDROCHLORIDE [Concomitant]
  6. TRICOR [Concomitant]
  7. PREVACID [Concomitant]
  8. SERTRALINE [Concomitant]

REACTIONS (6)
  - ANGER [None]
  - FRUSTRATION [None]
  - HOMICIDAL IDEATION [None]
  - IMPATIENCE [None]
  - IRRITABILITY [None]
  - STRESS [None]
